FAERS Safety Report 9942459 (Version 1)
Quarter: 2014Q1

REPORT INFORMATION
  Report Type: Report from Study
  Country: US (occurrence: US)
  Receive Date: 20140303
  Receipt Date: 20140303
  Transmission Date: 20141002
  Serious: No
  Sender: FDA-Public Use
  Company Number: US-ABBVIE-13P-163-1044987-00

PATIENT
  Age: 58 Year
  Sex: Male
  Weight: 99.88 kg

DRUGS (4)
  1. HUMIRA [Suspect]
     Indication: PSORIATIC ARTHROPATHY
     Dates: start: 20130117, end: 20130117
  2. HUMIRA [Suspect]
     Dates: start: 20130131
  3. DICLOFENAX SODIUM [Concomitant]
     Indication: PSORIATIC ARTHROPATHY
  4. ULORIC [Concomitant]
     Indication: GOUT

REACTIONS (4)
  - Wrong technique in drug usage process [Recovered/Resolved]
  - Paraesthesia [Recovered/Resolved]
  - Incorrect dose administered [Recovered/Resolved]
  - Incorrect route of drug administration [Recovered/Resolved]
